FAERS Safety Report 6197590-8 (Version None)
Quarter: 2009Q2

REPORT INFORMATION
  Report Type: 
  Country: None (occurrence: None)
  Receive Date: 20090521
  Receipt Date: 20090513
  Transmission Date: 20091009
  Serious: Yes (Hospitalization, Other)
  Sender: FDA-Public Use
  Company Number: PHHY2009JP13611

PATIENT
  Sex: Female
  Weight: 50 kg

DRUGS (17)
  1. GLEEVEC [Suspect]
     Indication: CHRONIC MYELOID LEUKAEMIA
     Dosage: 400 MG/DAY
     Route: 048
     Dates: start: 20090326, end: 20090401
  2. CRAVIT [Suspect]
     Indication: PYREXIA
     Dosage: 300 MG/DAY
     Route: 048
     Dates: start: 20090401, end: 20090402
  3. ATARAX [Concomitant]
     Indication: PYREXIA
     Dosage: 50 MG, UNK
     Route: 048
     Dates: start: 20090402, end: 20090409
  4. OLOPATADINE HYDROCHLORIDE [Concomitant]
     Indication: RASH
     Dosage: 10 MG, UNK
     Route: 048
     Dates: start: 20090403, end: 20090409
  5. TAKEPRON [Concomitant]
     Indication: HYPERCHLORHYDRIA
     Dosage: 30 MG, UNK
     Route: 048
     Dates: start: 20090407
  6. MOHRUS [Concomitant]
     Indication: MYALGIA
     Dosage: UNK
     Dates: start: 20090407, end: 20090410
  7. TOPSYM [Concomitant]
     Indication: RASH
     Dosage: UNK
     Dates: start: 20090403, end: 20090410
  8. LOCOID [Concomitant]
     Indication: RASH
     Dosage: UNK
     Dates: start: 20090403, end: 20090410
  9. CALONAL [Concomitant]
     Indication: PYREXIA
     Dosage: UNK
     Route: 048
     Dates: start: 20090402, end: 20090410
  10. HYPEN [Concomitant]
     Indication: PYREXIA
     Dosage: UNK
     Route: 048
     Dates: start: 20090402, end: 20090410
  11. DICLOFENAC SODIUM [Concomitant]
     Indication: PYREXIA
     Dosage: UNK
     Route: 054
     Dates: start: 20090402, end: 20090410
  12. POTACOL-R [Concomitant]
     Indication: FLUID REPLACEMENT
     Dosage: 500 ML, UNK
     Route: 042
     Dates: start: 20090402, end: 20090402
  13. SODIUM CHLORIDE [Concomitant]
     Dosage: 20 ML, UNK
     Route: 042
     Dates: start: 20090402, end: 20090406
  14. SOLDEM 3A [Concomitant]
     Indication: PANCREATITIS
     Dosage: 500 ML, UNK
     Route: 042
     Dates: start: 20090402, end: 20090404
  15. MIRACLID [Concomitant]
     Indication: PANCREATITIS
     Dosage: 200000 IU, UNK
     Route: 042
     Dates: start: 20090402, end: 20090404
  16. VITAMEDIN INTRAVENOUS [Concomitant]
     Indication: VITAMIN SUPPLEMENTATION
     Dosage: 1 DF, UNK
     Route: 042
     Dates: start: 20090402, end: 20090402
  17. ANTIBIOTICS [Concomitant]

REACTIONS (8)
  - ABDOMINAL PAIN [None]
  - ASTHENIA [None]
  - CHILLS [None]
  - INFLAMMATION [None]
  - PANCREATITIS [None]
  - PANNICULITIS [None]
  - PYREXIA [None]
  - RASH GENERALISED [None]
